FAERS Safety Report 8901139 (Version 3)
Quarter: 2013Q4

REPORT INFORMATION
  Report Type: Spontaneous
  Country: US (occurrence: US)
  Receive Date: 20121109
  Receipt Date: 20131101
  Transmission Date: 20140711
  Serious: No
  Sender: FDA-Public Use
  Company Number: US-PFIZER INC-2012277808

PATIENT
  Age: 65 Year
  Sex: Male
  Weight: 109 kg

DRUGS (6)
  1. ZOLOFT [Suspect]
     Indication: ANXIETY
     Dosage: 100 MG, 1X/DAY
     Route: 048
     Dates: start: 201204, end: 2012
  2. ZOLOFT [Suspect]
     Indication: DEPRESSION
     Dosage: 50 MG, 1X/DAY
     Route: 048
     Dates: start: 2012, end: 2012
  3. ZOLOFT [Suspect]
     Dosage: UNK
     Route: 048
     Dates: start: 2012
  4. ZOLOFT [Suspect]
     Dosage: 50 MG, 1X/DAY
     Route: 048
     Dates: start: 201309, end: 201309
  5. COZAAR [Concomitant]
     Indication: HYPERTENSION
     Dosage: 100 MG, 1X/DAY
  6. LIPITOR [Concomitant]
     Indication: BLOOD CHOLESTEROL INCREASED
     Dosage: UNK

REACTIONS (5)
  - Temporomandibular joint syndrome [Recovering/Resolving]
  - Headache [Recovering/Resolving]
  - Feeling abnormal [Recovering/Resolving]
  - Dry throat [Recovering/Resolving]
  - Throat tightness [Recovering/Resolving]
